FAERS Safety Report 6710032-6 (Version None)
Quarter: 2010Q2

REPORT INFORMATION
  Report Type: 
  Country: None (occurrence: None)
  Receive Date: 20100503
  Receipt Date: 20100503
  Transmission Date: 20101027
  Serious: No
  Sender: FDA-Public Use
  Company Number: None

PATIENT
  Age: 11 Month
  Sex: Female
  Weight: 9.0719 kg

DRUGS (2)
  1. CHILDREN'S MOTRIN [Suspect]
     Indication: ABNORMAL BEHAVIOUR
     Dosage: ONCE PO
     Route: 048
     Dates: start: 20100427, end: 20100427
  2. CHILDREN'S MOTRIN [Suspect]
     Indication: EAR PAIN
     Dosage: ONCE PO
     Route: 048
     Dates: start: 20100427, end: 20100427

REACTIONS (2)
  - INSOMNIA [None]
  - PSYCHOMOTOR HYPERACTIVITY [None]
